FAERS Safety Report 7759186-3 (Version None)
Quarter: 2011Q3

REPORT INFORMATION
  Report Type: 
  Country: None (occurrence: None)
  Receive Date: 20110919
  Receipt Date: 20110913
  Transmission Date: 20111222
  Serious: Yes (Hospitalization, Other)
  Sender: FDA-Public Use
  Company Number: PHEH2010US03714

PATIENT
  Sex: Male

DRUGS (8)
  1. ELAVIL [Concomitant]
     Dosage: 50 MG, UNK
  2. CEPHALEXIN [Concomitant]
  3. MEPERGAN [Concomitant]
  4. IBUPROFEN [Concomitant]
  5. KEFLEX [Concomitant]
  6. LORTAB [Concomitant]
  7. ZOMETA [Suspect]
  8. LUPRON [Concomitant]

REACTIONS (29)
  - DYSPEPSIA [None]
  - DECREASED INTEREST [None]
  - METASTASES TO BONE [None]
  - GASTROOESOPHAGEAL REFLUX DISEASE [None]
  - OSTEOARTHRITIS [None]
  - PAIN [None]
  - PARAESTHESIA [None]
  - EXOSTOSIS [None]
  - OSTEITIS DEFORMANS [None]
  - OSTEONECROSIS OF JAW [None]
  - ANXIETY [None]
  - HOT FLUSH [None]
  - DYSPHAGIA [None]
  - INTERVERTEBRAL DISC PROTRUSION [None]
  - NIGHT SWEATS [None]
  - BACK PAIN [None]
  - DEPRESSION [None]
  - EYE INJURY [None]
  - SWELLING [None]
  - PROSTATE CANCER METASTATIC [None]
  - STRESS [None]
  - HYPOAESTHESIA [None]
  - EMBOLISM VENOUS [None]
  - OSTEOMYELITIS [None]
  - DEFORMITY [None]
  - BONE PAIN [None]
  - VOMITING [None]
  - NECK MASS [None]
  - HEADACHE [None]
